FAERS Safety Report 15928271 (Version 1)
Quarter: 2019Q1

REPORT INFORMATION
  Report Type: Spontaneous
  Country: JP (occurrence: JP)
  Receive Date: 20190206
  Receipt Date: 20190206
  Transmission Date: 20190417
  Serious: Yes (Other)
  Sender: FDA-Public Use
  Company Number: JP-PFIZER INC-2019042576

PATIENT

DRUGS (2)
  1. EPIPEN [Concomitant]
     Active Substance: EPINEPHRINE
  2. CYTOTEC [Suspect]
     Active Substance: MISOPROSTOL

REACTIONS (2)
  - Anaphylactic shock [Unknown]
  - Product prescribing error [Unknown]
